FAERS Safety Report 5440950-0 (Version None)
Quarter: 2007Q3

REPORT INFORMATION
  Report Type: 
  Country: None (occurrence: None)
  Receive Date: 20070731
  Receipt Date: 20070606
  Transmission Date: 20080115
  Serious: No
  Sender: FDA-Public Use
  Company Number: US200706001534

PATIENT
  Age: 66 Year
  Sex: Male
  Weight: 113.8 kg

DRUGS (7)
  1. BYETTA [Suspect]
     Indication: TYPE 2 DIABETES MELLITUS
     Dosage: 5 UG, 2/D, SUBCUTANEOUS; 10 UG, 2/D, SUBCUTANEOUS
     Route: 058
     Dates: start: 20070101, end: 20070201
  2. BYETTA [Suspect]
     Indication: TYPE 2 DIABETES MELLITUS
     Dosage: 5 UG, 2/D, SUBCUTANEOUS; 10 UG, 2/D, SUBCUTANEOUS
     Route: 058
     Dates: start: 20070201
  3. LISINOPRIL [Concomitant]
  4. LISINOPRIL /HCTZ (HYDROCHLOROTHIAZIDE, LISINOPRIL) [Concomitant]
  5. GLUCOPHAGE [Concomitant]
  6. GLIPIZIDE XL     (GLIPIZIDE) [Concomitant]
  7. ACTOS [Concomitant]

REACTIONS (2)
  - BLOOD GLUCOSE INCREASED [None]
  - WEIGHT FLUCTUATION [None]
